FAERS Safety Report 16541652 (Version 1)
Quarter: 2019Q3

REPORT INFORMATION
  Report Type: Spontaneous
  Country: GB (occurrence: GB)
  Receive Date: 20190708
  Receipt Date: 20190708
  Transmission Date: 20191004
  Serious: Yes (Other)
  Sender: FDA-Public Use
  Company Number: GB-TEVA-2019-GB-1073940

PATIENT
  Age: 71 Year
  Sex: Female

DRUGS (8)
  1. OXYNORM [Concomitant]
     Active Substance: OXYCODONE HYDROCHLORIDE
  2. CLOPIDOGREL [Suspect]
     Active Substance: CLOPIDOGREL BISULFATE
     Indication: MYOCARDIAL INFARCTION
     Route: 048
  3. RANITIDINE. [Concomitant]
     Active Substance: RANITIDINE
  4. PARACETAMOL [Concomitant]
     Active Substance: ACETAMINOPHEN
  5. CANDESARTAN. [Concomitant]
     Active Substance: CANDESARTAN
  6. SIMVASTATIN. [Concomitant]
     Active Substance: SIMVASTATIN
  7. FUROSEMIDE. [Concomitant]
     Active Substance: FUROSEMIDE
  8. ACETYLSALICYLIC ACID [Concomitant]
     Active Substance: ASPIRIN

REACTIONS (2)
  - Abdominal pain upper [Unknown]
  - Dyspnoea [Recovered/Resolved]
